FAERS Safety Report 15852719 (Version 2)
Quarter: 2019Q1

REPORT INFORMATION
  Report Type: Spontaneous
  Country: TR (occurrence: TR)
  Receive Date: 20190122
  Receipt Date: 20190206
  Transmission Date: 20190417
  Serious: Yes (Other)
  Sender: FDA-Public Use
  Company Number: PHHY2019TR011513

PATIENT
  Age: 62 Year
  Sex: Male

DRUGS (1)
  1. FAMVIR [Suspect]
     Active Substance: FAMCICLOVIR
     Indication: CORNEAL TRANSPLANT
     Dosage: 1 DF, TID
     Route: 065

REACTIONS (5)
  - Drug ineffective [Unknown]
  - Transplant rejection [Unknown]
  - Product use in unapproved indication [Unknown]
  - Eye infection [Unknown]
  - Transplantation complication [Unknown]
